FAERS Safety Report 18398413 (Version 1)
Quarter: 2020Q4

REPORT INFORMATION
  Report Type: Spontaneous
  Country: US (occurrence: US)
  Receive Date: 20201019
  Receipt Date: 20201019
  Transmission Date: 20210114
  Serious: No
  Sender: FDA-Public Use
  Company Number: None

PATIENT
  Sex: Female

DRUGS (2)
  1. HUMIRA [Suspect]
     Active Substance: ADALIMUMAB
     Indication: SPINAL OSTEOARTHRITIS
     Dosage: ?          OTHER FREQUENCY:EVERY14DAYS ;?
     Route: 058
     Dates: start: 20200825
  2. HUMIRA [Suspect]
     Active Substance: ADALIMUMAB
     Indication: LUMBAR RADICULOPATHY
     Dosage: ?          OTHER FREQUENCY:EVERY14DAYS ;?
     Route: 058
     Dates: start: 20200825

REACTIONS (1)
  - Drug ineffective [None]
